FAERS Safety Report 6197096-6 (Version None)
Quarter: 2009Q2

REPORT INFORMATION
  Report Type: 
  Country: None (occurrence: None)
  Receive Date: 20090518
  Receipt Date: 20090518
  Transmission Date: 20091009
  Serious: Yes (Life-Threatening, Hospitalization)
  Sender: FDA-Public Use
  Company Number: None

PATIENT
  Age: 43 Year
  Sex: Female
  Weight: 74 kg

DRUGS (1)
  1. PREMARIN [Suspect]
     Indication: MENORRHAGIA
     Dosage: 25 MG Q2H IV
     Route: 042
     Dates: start: 20080923, end: 20080923

REACTIONS (1)
  - CEREBROVASCULAR ACCIDENT [None]
